FAERS Safety Report 18951250 (Version 2)
Quarter: 2021Q1

REPORT INFORMATION
  Report Type: Spontaneous
  Country: US (occurrence: US)
  Receive Date: 20210228
  Receipt Date: 20210301
  Transmission Date: 20210420
  Serious: Yes (Death)
  Sender: FDA-Public Use
  Company Number: US-JNJFOC-20210241965

PATIENT
  Sex: Male

DRUGS (1)
  1. TYLENOL [Suspect]
     Active Substance: ACETAMINOPHEN
     Indication: PAIN
     Dosage: 8 TYLENOL A DAY
     Route: 048

REACTIONS (2)
  - Product use issue [Fatal]
  - Hepatic failure [Fatal]

NARRATIVE: CASE EVENT DATE: 2002
